FAERS Safety Report 4483794-9 (Version None)
Quarter: 2004Q4

REPORT INFORMATION
  Report Type: 
  Country: None (occurrence: None)
  Receive Date: 20041025
  Receipt Date: 20041014
  Transmission Date: 20050328
  Serious: Yes (Death)
  Sender: FDA-Public Use
  Company Number: GR-SOLVAY-00204003736

PATIENT
  Age: 30034 Day
  Sex: Female
  Weight: 65 kg

DRUGS (5)
  1. BLINDED THERAPY (PERINDOPRIL VS PLACEBO) [Suspect]
     Dosage: DAILY DOSE: 4 MILLIGRAM(S)
     Route: 048
     Dates: start: 20030211, end: 20040110
  2. ASPIRIN [Concomitant]
     Dosage: DAILY DOSE:  UNKNOWN
     Route: 048
     Dates: start: 20030131, end: 20040110
  3. VASTAREL [Concomitant]
     Dosage: DAILY DOSE:  UNKNOWN
     Route: 048
     Dates: start: 20030201, end: 20040110
  4. CARVEDILOL [Concomitant]
     Dosage: DAILY DOSE:  UNKNOWN
     Route: 048
     Dates: start: 20030201, end: 20040110
  5. MONOSORDIL [Concomitant]
     Dosage: DAILY DOSE:  UNKNOWN
     Route: 048
     Dates: start: 20030203, end: 20040110

REACTIONS (1)
  - SUDDEN DEATH [None]
